FAERS Safety Report 14912948 (Version 9)
Quarter: 2019Q2

REPORT INFORMATION
  Report Type: Report from Study
  Country: DE (occurrence: DE)
  Receive Date: 20180518
  Receipt Date: 20190604
  Transmission Date: 20190711
  Serious: Yes (Hospitalization)
  Sender: FDA-Public Use
  Company Number: DE-ROCHE-2123492

PATIENT
  Age: 59 Year
  Sex: Female
  Weight: 54 kg

DRUGS (20)
  1. MOMEGALEN [Concomitant]
     Indication: RASH
     Route: 061
     Dates: start: 20180414
  2. DEXAMETHASON [DEXAMETHASONE] [Concomitant]
     Active Substance: DEXAMETHASONE
     Indication: DECREASED APPETITE
     Route: 048
     Dates: start: 20180317, end: 20180324
  3. DEXAMETHASON [DEXAMETHASONE] [Concomitant]
     Active Substance: DEXAMETHASONE
     Route: 048
     Dates: start: 20180331, end: 20180407
  4. ATEZOLIZUMAB. [Suspect]
     Active Substance: ATEZOLIZUMAB
     Indication: MALIGNANT MELANOMA
     Dosage: DATE OF MOST RECENT DOSE PRIOR TO SAE WAS ON 24/APR/2018
     Route: 042
     Dates: start: 20180424
  5. VEMURAFENIB. [Suspect]
     Active Substance: VEMURAFENIB
     Indication: MALIGNANT MELANOMA
     Dosage: 4 TABLETS OF VEMURAFENIB ADMINISTERED PRIOR TO SAE ONSET ON 07/MAY/2018
     Route: 048
     Dates: start: 20180327
  6. IBUPROFEN. [Concomitant]
     Active Substance: IBUPROFEN
     Indication: BACK PAIN
     Route: 048
  7. CLOTRIMAZOL [Concomitant]
     Active Substance: CLOTRIMAZOLE
     Indication: FUNGAL INFECTION
     Route: 048
     Dates: start: 20180423, end: 20180423
  8. DEXAMETHASON [DEXAMETHASONE] [Concomitant]
     Active Substance: DEXAMETHASONE
     Route: 048
     Dates: start: 20180325, end: 20180327
  9. COBIMETINIB. [Suspect]
     Active Substance: COBIMETINIB
     Indication: MALIGNANT MELANOMA
     Dosage: DATE OF MOST RECENT DOSE WAS ON 07/MAY/2018 (60 MG)
     Route: 048
     Dates: start: 20180327
  10. IBUPROFEN. [Concomitant]
     Active Substance: IBUPROFEN
     Indication: ARTHRALGIA
  11. IBUPROFEN. [Concomitant]
     Active Substance: IBUPROFEN
     Indication: PYREXIA
  12. AMOXICILLIN;CLAVULANIC ACID [Concomitant]
     Active Substance: AMOXICILLIN\CLAVULANIC ACID
     Indication: GENERAL PHYSICAL HEALTH DETERIORATION
     Route: 048
     Dates: start: 20180508, end: 20180510
  13. RANITIC [Concomitant]
     Active Substance: RANITIDINE HYDROCHLORIDE
     Indication: PROPHYLAXIS
     Route: 048
     Dates: start: 20180511, end: 20180511
  14. PANTOZOL [Concomitant]
     Active Substance: PANTOPRAZOLE SODIUM
     Route: 048
     Dates: start: 20180323
  15. NYSTATIN. [Concomitant]
     Active Substance: NYSTATIN
     Indication: FUNGAL INFECTION
     Route: 065
     Dates: start: 20180423, end: 20180423
  16. AMPHO MORONAL [Concomitant]
     Active Substance: AMPHOTERICIN B
     Indication: FUNGAL INFECTION
     Route: 048
     Dates: start: 20180424
  17. CLOTRIMAZOL [Concomitant]
     Active Substance: CLOTRIMAZOLE
     Route: 061
     Dates: start: 20180423, end: 20180423
  18. DEXAMETHASON [DEXAMETHASONE] [Concomitant]
     Active Substance: DEXAMETHASONE
     Route: 048
     Dates: start: 20180328, end: 20180330
  19. VITAMIN D3 [Concomitant]
     Active Substance: CHOLECALCIFEROL
     Indication: PROPHYLAXIS
     Dosage: DOSE: 1000 UNIT
     Route: 048
     Dates: start: 20180514, end: 20180716
  20. NACL [Concomitant]
     Active Substance: SODIUM CHLORIDE
     Indication: ELECTROLYTE IMBALANCE
     Route: 042
     Dates: start: 201805, end: 201805

REACTIONS (2)
  - Systemic inflammatory response syndrome [Recovered/Resolved]
  - Blood creatine phosphokinase increased [Recovered/Resolved]

NARRATIVE: CASE EVENT DATE: 20180410
